FAERS Safety Report 6523843-7 (Version None)
Quarter: 2009Q4

REPORT INFORMATION
  Report Type: 
  Country: None (occurrence: None)
  Receive Date: 20091230
  Receipt Date: 20091230
  Transmission Date: 20100525
  Serious: No
  Sender: FDA-Public Use
  Company Number: None

PATIENT
  Age: 62 Year
  Sex: Male
  Weight: 90.7194 kg

DRUGS (1)
  1. TYLENOL 650 MG CAPLETS MCNEIL-PPC, INC [Suspect]
     Indication: ARTHRITIS
     Dosage: 2 CAPLETS AS NEEDED PO
     Route: 048
     Dates: start: 20090801, end: 20091228

REACTIONS (9)
  - DECREASED APPETITE [None]
  - DIARRHOEA [None]
  - EYE IRRITATION [None]
  - GASTRIC DISORDER [None]
  - GASTROENTERITIS VIRAL [None]
  - HEADACHE [None]
  - MALAISE [None]
  - NAUSEA [None]
  - PRODUCT QUALITY ISSUE [None]
